FAERS Safety Report 4496730-6 (Version None)
Quarter: 2004Q4

REPORT INFORMATION
  Report Type: 
  Country: None (occurrence: None)
  Receive Date: 20041109
  Receipt Date: 20041029
  Transmission Date: 20050328
  Serious: Yes (Life-Threatening, Hospitalization)
  Sender: FDA-Public Use
  Company Number: NO-MERCK-0411NOR00001

PATIENT
  Age: 64 Year
  Sex: Male

DRUGS (8)
  1. LOSARTAN POTASSIUM [Concomitant]
     Indication: HYPERTENSION
     Route: 048
  2. ALDOMET [Suspect]
     Indication: HYPERTENSION
     Route: 048
     Dates: start: 20040914, end: 20040901
  3. ALDOMET [Suspect]
     Route: 048
     Dates: start: 20040930, end: 20040930
  4. BISOPROLOL FUMARATE [Concomitant]
     Indication: HYPERTENSION
     Route: 048
  5. ASPIRIN AND MAGNESIUM OXIDE [Concomitant]
     Route: 048
  6. ATORVASTATIN CALCIUM [Concomitant]
     Indication: HYPERLIPIDAEMIA
     Route: 048
  7. LERCANIDIPINE HYDROCHLORIDE [Concomitant]
     Indication: HYPERTENSION
     Route: 048
  8. MOXONIDINE [Concomitant]
     Indication: HYPERTENSION
     Route: 048

REACTIONS (7)
  - ANAEMIA [None]
  - ASCITES [None]
  - CHILLS [None]
  - HEPATOCELLULAR DAMAGE [None]
  - LUNG CONSOLIDATION [None]
  - NEPHRITIS [None]
  - THROMBOCYTOPENIA [None]
